FAERS Safety Report 21085614 (Version 17)
Quarter: 2024Q2

REPORT INFORMATION
  Report Type: Spontaneous
  Country: CA (occurrence: CA)
  Receive Date: 20220715
  Receipt Date: 20240530
  Transmission Date: 20240716
  Serious: Yes (Hospitalization, Other)
  Sender: FDA-Public Use
  Company Number: CA-CELLTRION INC.-2021CA017937

PATIENT

DRUGS (20)
  1. INFLECTRA [Suspect]
     Active Substance: INFLIXIMAB-DYYB
     Indication: Colitis ulcerative
     Dosage: 900 MG (10 MG/KG), WEEKS 0,1 AND 5 THEN EVERY 6 WEEKS
     Route: 042
     Dates: start: 20211110
  2. INFLECTRA [Suspect]
     Active Substance: INFLIXIMAB-DYYB
     Dosage: 10 MG/KG, WEEKS 0,1 AND 5 THEN EVERY 6 WEEKS
     Route: 042
     Dates: start: 20211217
  3. INFLECTRA [Suspect]
     Active Substance: INFLIXIMAB-DYYB
     Dosage: 10 MG/KG, WEEKS 0,1 AND 5 THEN EVERY 6 WEEKS
     Route: 042
     Dates: start: 20220127
  4. INFLECTRA [Suspect]
     Active Substance: INFLIXIMAB-DYYB
     Dosage: 900 MG, WEEKS 0,1 AND 5 WEEKS. THEN EVERY 6 WEEKS
     Route: 042
     Dates: start: 20220314
  5. INFLECTRA [Suspect]
     Active Substance: INFLIXIMAB-DYYB
     Dosage: 900 MG, WEEKS 0,1 AND 5 WEEKS. THEN EVERY 6 WEEKS
     Route: 042
     Dates: start: 20220425
  6. INFLECTRA [Suspect]
     Active Substance: INFLIXIMAB-DYYB
     Dosage: 900 MG, WEEKS 0,1 AND 5 WEEKS. THEN EVERY 6 WEEKS
     Route: 042
     Dates: start: 20220606
  7. INFLECTRA [Suspect]
     Active Substance: INFLIXIMAB-DYYB
     Dosage: 900 MG, WEEKS 0,1 AND 5 WEEKS. THEN EVERY 6 WEEKS
     Route: 042
     Dates: start: 20220718
  8. INFLECTRA [Suspect]
     Active Substance: INFLIXIMAB-DYYB
     Dosage: 900 MG, WEEKS 0,1 AND 5 WEEKS. THEN EVERY 6 WEEKS
     Route: 042
     Dates: start: 20220829
  9. INFLECTRA [Suspect]
     Active Substance: INFLIXIMAB-DYYB
     Dosage: 900 MG, WEEKS 0,1 AND 5 WEEKS. THEN EVERY 6 WEEKS
     Route: 042
     Dates: start: 20221011
  10. INFLECTRA [Suspect]
     Active Substance: INFLIXIMAB-DYYB
     Dosage: 900 MG, WEEKS 0,1 AND 5 WEEKS. THEN EVERY 6 WEEKS
     Route: 042
     Dates: start: 20221122
  11. INFLECTRA [Suspect]
     Active Substance: INFLIXIMAB-DYYB
     Dosage: 900 MG, WEEKS 0,1 AND 5 WEEKS. THEN EVERY 6 WEEKS
     Route: 042
     Dates: start: 20230103
  12. INFLECTRA [Suspect]
     Active Substance: INFLIXIMAB-DYYB
     Dosage: 900 MG, WEEKS 0,1 AND 5 WEEKS. THEN EVERY 6 WEEKS
     Route: 042
     Dates: start: 20230620
  13. INFLECTRA [Suspect]
     Active Substance: INFLIXIMAB-DYYB
     Dosage: 900MG, 6 WEEKS AND 1 DAY
     Route: 042
     Dates: start: 20230802
  14. INFLECTRA [Suspect]
     Active Substance: INFLIXIMAB-DYYB
     Dosage: 900MG, EVERY 6 WEEKS
     Route: 042
     Dates: start: 20230912
  15. INFLECTRA [Suspect]
     Active Substance: INFLIXIMAB-DYYB
     Dosage: 900MG, EVERY 6 WEEKS
     Route: 042
     Dates: start: 20231024
  16. INFLECTRA [Suspect]
     Active Substance: INFLIXIMAB-DYYB
     Dosage: 900MG, EVERY 6 WEEKS
     Route: 042
     Dates: start: 20231205
  17. INFLECTRA [Suspect]
     Active Substance: INFLIXIMAB-DYYB
     Dosage: 900 MG, WEEKS 0,1 AND 5 WEEKS. THEN EVERY 6 WEEKS
     Route: 042
     Dates: start: 20240409
  18. INFLECTRA [Suspect]
     Active Substance: INFLIXIMAB-DYYB
     Dosage: 900 MG, AFTER 6 WEEKS
     Route: 042
     Dates: start: 20240521
  19. PREDNISONE [Concomitant]
     Active Substance: PREDNISONE
     Dosage: 1 DF
  20. VALGANCICLOVIR [Concomitant]
     Active Substance: VALGANCICLOVIR
     Dosage: 1 DF

REACTIONS (17)
  - Gastrointestinal disorder [Unknown]
  - Perforation [Not Recovered/Not Resolved]
  - Condition aggravated [Not Recovered/Not Resolved]
  - Large intestine perforation [Not Recovered/Not Resolved]
  - Mammoplasty [Recovered/Resolved]
  - Condition aggravated [Recovered/Resolved]
  - Drug ineffective [Unknown]
  - Pseudopolyp [Not Recovered/Not Resolved]
  - Vein collapse [Unknown]
  - Poor venous access [Unknown]
  - Attention deficit hyperactivity disorder [Unknown]
  - Cough [Recovering/Resolving]
  - Weight decreased [Unknown]
  - Off label use [Unknown]
  - Off label use [Unknown]
  - Off label use [Unknown]
  - Intentional product use issue [Unknown]

NARRATIVE: CASE EVENT DATE: 20211217
